FAERS Safety Report 17326535 (Version 2)
Quarter: 2020Q2

REPORT INFORMATION
  Report Type: Spontaneous
  Country: US (occurrence: US)
  Receive Date: 20200127
  Receipt Date: 20200406
  Transmission Date: 20200713
  Serious: Yes (Other)
  Sender: FDA-Public Use
  Company Number: US-PFIZER INC-2020038045

PATIENT
  Age: 51 Year
  Sex: Female

DRUGS (1)
  1. LYRICA [Suspect]
     Active Substance: PREGABALIN
     Dosage: UNK

REACTIONS (10)
  - Nasopharyngitis [Unknown]
  - Sinusitis [Unknown]
  - Lung disorder [Unknown]
  - Diverticulitis [Unknown]
  - Arthralgia [Unknown]
  - Oropharyngeal pain [Unknown]
  - Asthma [Unknown]
  - Cough [Unknown]
  - Swollen tongue [Unknown]
  - Carpal tunnel syndrome [Unknown]
